FAERS Safety Report 7612306-3 (Version None)
Quarter: 2011Q3

REPORT INFORMATION
  Report Type: 
  Country: None (occurrence: None)
  Receive Date: 20110715
  Receipt Date: 20110708
  Transmission Date: 20111222
  Serious: Yes (Hospitalization)
  Sender: FDA-Public Use
  Company Number: KR-AMGEN-KORCT2011027687

PATIENT
  Age: 54 Year
  Sex: Male
  Weight: 70 kg

DRUGS (8)
  1. MINOCIN [Concomitant]
     Indication: BACILLUS INFECTION
     Dosage: UNK
     Route: 048
     Dates: start: 20110426
  2. NORVASC [Concomitant]
     Indication: HYPERTENSION
     Dosage: UNK
     Route: 048
     Dates: start: 20110412
  3. DICHLOZID [Concomitant]
     Indication: HYPERTENSION
     Dosage: UNK
     Route: 048
     Dates: start: 20110426
  4. LACTICARE HC [Concomitant]
     Indication: SKIN DISORDER
     Dosage: UNK
     Route: 050
     Dates: start: 20110426
  5. MAGNESIUM OXIDE [Concomitant]
     Indication: SUPPLEMENTATION THERAPY
     Dosage: UNK
     Route: 048
     Dates: start: 20110412
  6. OXYCONTIN [Concomitant]
     Indication: PAIN
     Dosage: UNK
     Route: 048
     Dates: start: 20110412
  7. GASMOTIN [Concomitant]
     Indication: NAUSEA
     Dosage: UNK
     Route: 048
     Dates: start: 20110511
  8. PANITUMUMAB [Suspect]
     Indication: COLORECTAL CANCER
     Dosage: 420 MG, UNK
     Dates: start: 20110412

REACTIONS (2)
  - HYPONATRAEMIA [None]
  - ASTHENIA [None]
